FAERS Safety Report 9521845 (Version 1)
Quarter: 2013Q3

REPORT INFORMATION
  Report Type: Spontaneous
  Country: FR (occurrence: FR)
  Receive Date: 20130913
  Receipt Date: 20130913
  Transmission Date: 20140515
  Serious: Yes (Other)
  Sender: FDA-Public Use
  Company Number: PHHY2013FR099804

PATIENT
  Age: 40 Year
  Sex: Male

DRUGS (2)
  1. OSLIF BREEZHALER [Suspect]
     Indication: CHRONIC OBSTRUCTIVE PULMONARY DISEASE
     Dosage: 150 UG, QD
     Dates: start: 20130826, end: 20130903
  2. VENTOLIN                           /00942701/ [Concomitant]

REACTIONS (4)
  - Malaise [Unknown]
  - Bronchospasm [Unknown]
  - Dyspnoea [Unknown]
  - Cough [Unknown]
